FAERS Safety Report 18761326 (Version 1)
Quarter: 2021Q1

REPORT INFORMATION
  Report Type: Spontaneous
  Country: US (occurrence: US)
  Receive Date: 20210119
  Receipt Date: 20210119
  Transmission Date: 20210419
  Serious: Yes (Other)
  Sender: FDA-Public Use
  Company Number: None

PATIENT
  Age: 65 Year
  Sex: Female
  Weight: 59 kg

DRUGS (2)
  1. BAMLANIVIMAB. [Suspect]
     Active Substance: BAMLANIVIMAB
     Indication: COVID-19
     Dosage: ?          OTHER FREQUENCY:ONCE;?
     Route: 040
     Dates: start: 20210118, end: 20210118
  2. SODIUM CHLORIDE 0.9% 250 ML [Concomitant]
     Dates: start: 20210118, end: 20210118

REACTIONS (4)
  - Joint injury [None]
  - Flushing [None]
  - Limb injury [None]
  - Loss of consciousness [None]

NARRATIVE: CASE EVENT DATE: 20210118
